FAERS Safety Report 5027153-9 (Version None)
Quarter: 2006Q2

REPORT INFORMATION
  Report Type: 
  Country: None (occurrence: None)
  Receive Date: 20060501
  Receipt Date: 20060131
  Transmission Date: 20061013
  Serious: No
  Sender: FDA-Public Use
  Company Number: 2006PV007908

PATIENT
  Age: 65 Year
  Sex: Male
  Weight: 104.7809 kg

DRUGS (4)
  1. SYMLIN INJECTION (0.6 MG/ML) [Suspect]
     Indication: DIABETES MELLITUS NON-INSULIN-DEPENDENT
     Dosage: 120 MCG; TID; SC;  60 MCG; TID; SC
     Route: 058
     Dates: start: 20051126, end: 20051129
  2. SYMLIN INJECTION (0.6 MG/ML) [Suspect]
     Indication: DIABETES MELLITUS NON-INSULIN-DEPENDENT
     Dosage: 120 MCG; TID; SC;  60 MCG; TID; SC
     Route: 058
     Dates: start: 20051130
  3. LANTUS [Concomitant]
  4. NOVOLOG [Concomitant]

REACTIONS (3)
  - ABDOMINAL DISTENSION [None]
  - INJECTION SITE PAIN [None]
  - WEIGHT DECREASED [None]
